FAERS Safety Report 4844107-3 (Version None)
Quarter: 2005Q4

REPORT INFORMATION
  Report Type: 
  Country: None (occurrence: None)
  Receive Date: 20051202
  Receipt Date: 20051123
  Transmission Date: 20060501
  Serious: Yes (Other)
  Sender: FDA-Public Use
  Company Number: AU-ROCHE-425834

PATIENT
  Age: 62 Year
  Sex: Male

DRUGS (6)
  1. XELODA [Suspect]
     Indication: DRUG USE FOR UNKNOWN INDICATION
     Route: 048
     Dates: start: 20030618, end: 20030619
  2. ASPIRIN [Concomitant]
  3. METOPROLOL [Concomitant]
  4. IMDUR [Concomitant]
  5. NORVASC [Concomitant]
  6. IRON [Concomitant]

REACTIONS (1)
  - ACUTE CORONARY SYNDROME [None]
